FAERS Safety Report 18399378 (Version 7)
Quarter: 2021Q2

REPORT INFORMATION
  Report Type: Spontaneous
  Country: US (occurrence: US)
  Receive Date: 20201019
  Receipt Date: 20210421
  Transmission Date: 20210717
  Serious: Yes (Other)
  Sender: FDA-Public Use
  Company Number: US-PFIZER INC-2020400830

PATIENT
  Age: 85 Year
  Sex: Female

DRUGS (6)
  1. MEKTOVI [Suspect]
     Active Substance: BINIMETINIB
     Dosage: 30 MG, 2X/DAY
     Route: 048
  2. BRAFTOVI [Suspect]
     Active Substance: ENCORAFENIB
     Indication: MALIGNANT MELANOMA OF SITES OTHER THAN SKIN
     Dosage: 450 MG, 1X/DAY
     Route: 048
     Dates: start: 20200828
  3. MEKTOVI [Suspect]
     Active Substance: BINIMETINIB
     Dosage: 45 MG, DAILY
     Route: 048
  4. BRAFTOVI [Suspect]
     Active Substance: ENCORAFENIB
     Dosage: 225 MG, DAILY
     Route: 048
  5. MEKTOVI [Suspect]
     Active Substance: BINIMETINIB
     Indication: MALIGNANT MELANOMA OF SITES OTHER THAN SKIN
     Dosage: 45 MG, 2X/DAY
     Route: 048
     Dates: start: 20200828
  6. BRAFTOVI [Suspect]
     Active Substance: ENCORAFENIB
     Dosage: 300 MG, DAILY
     Route: 048

REACTIONS (16)
  - Urinary tract infection [Unknown]
  - Tumour marker increased [Unknown]
  - Blood count abnormal [Unknown]
  - Pruritus [Unknown]
  - Asthenia [Unknown]
  - Fall [Unknown]
  - Nausea [Not Recovered/Not Resolved]
  - Dry skin [Unknown]
  - Appetite disorder [Unknown]
  - Erythema [Unknown]
  - Fatigue [Unknown]
  - Muscular weakness [Unknown]
  - Product dose omission issue [Unknown]
  - Constipation [Unknown]
  - Somnolence [Unknown]
  - Dehydration [Unknown]
